FAERS Safety Report 7932871 (Version 5)
Quarter: 2014Q4

REPORT INFORMATION
  Report Type: Spontaneous
  Country: US (occurrence: US)
  Receive Date: 20110506
  Receipt Date: 20141223
  Transmission Date: 20150529
  Serious: Yes (Life-Threatening, Hospitalization, Disabling)
  Sender: FDA-Public Use
  Company Number: US-BAYER-2011-038388

PATIENT
  Age: 44 Year
  Sex: Female
  Weight: 73.47 kg

DRUGS (19)
  1. YASMIN [Suspect]
     Active Substance: DROSPIRENONE\ETHINYL ESTRADIOL
     Indication: CONTRACEPTION
  2. VICODIN [Concomitant]
     Active Substance: ACETAMINOPHEN\HYDROCODONE BITARTRATE
  3. WELLBUTRIN [Concomitant]
     Active Substance: BUPROPION HYDROCHLORIDE
     Dosage: 150 MG, UNK
     Dates: start: 20050222
  4. MOTRIN [Concomitant]
     Active Substance: IBUPROFEN
  5. YASMIN [Suspect]
     Active Substance: DROSPIRENONE\ETHINYL ESTRADIOL
     Indication: MENSTRUAL CYCLE MANAGEMENT
  6. NASONEX [Concomitant]
     Active Substance: MOMETASONE FUROATE
     Dosage: UNK
     Dates: start: 20050304
  7. YASMIN [Suspect]
     Active Substance: DROSPIRENONE\ETHINYL ESTRADIOL
     Indication: CONTRACEPTION
     Dosage: UNK
     Dates: start: 200501, end: 2009
  8. ZYRTEC [Concomitant]
     Active Substance: CETIRIZINE HYDROCHLORIDE
     Dosage: UNK UNK, BID
  9. ORTHO-NOVUM 1/50 [Concomitant]
     Dosage: UNK
     Dates: start: 20050101
  10. NIACIN. [Concomitant]
     Active Substance: NIACIN
  11. OCELLA [Suspect]
     Active Substance: DROSPIRENONE\ETHINYL ESTRADIOL
     Indication: CONTRACEPTION
     Dosage: UNK
     Dates: start: 2005, end: 2009
  12. ZITHROMAX [Concomitant]
     Active Substance: AZITHROMYCIN DIHYDRATE
     Dosage: UNK
     Dates: start: 20041202
  13. QUERCETIN [Concomitant]
     Active Substance: QUERCETIN
  14. GINKGO BILOBA [Concomitant]
     Active Substance: GINKGO
  15. OCELLA [Suspect]
     Active Substance: DROSPIRENONE\ETHINYL ESTRADIOL
     Indication: MENSTRUAL CYCLE MANAGEMENT
  16. MEDROL [Concomitant]
     Active Substance: METHYLPREDNISOLONE
     Dosage: UNK
     Dates: start: 20050304, end: 20050308
  17. IBUPROFEN. [Concomitant]
     Active Substance: IBUPROFEN
     Dosage: 800 MG, UNK
  18. E.E.S. [Concomitant]
     Active Substance: ERYTHROMYCIN ETHYLSUCCINATE
     Dosage: UNK UNK, QID
  19. PREDNISONE. [Concomitant]
     Active Substance: PREDNISONE
     Dosage: UNK
     Dates: start: 20050104, end: 20050104

REACTIONS (20)
  - Anxiety [Recovered/Resolved]
  - Sleep disorder [None]
  - Intracranial venous sinus thrombosis [Recovered/Resolved]
  - Thrombosis [Recovered/Resolved]
  - Injury [Recovered/Resolved]
  - Depression [None]
  - Back pain [None]
  - Jugular vein thrombosis [Recovered/Resolved]
  - Muscle spasms [Recovered/Resolved]
  - Headache [Recovered/Resolved]
  - Aphasia [Recovered/Resolved]
  - Joint swelling [None]
  - Fatigue [None]
  - Stress [None]
  - Pain [Recovered/Resolved]
  - Oedema peripheral [Recovered/Resolved]
  - Limb discomfort [Recovered/Resolved]
  - Peripheral venous disease [None]
  - Headache [None]
  - Pain [None]

NARRATIVE: CASE EVENT DATE: 20050318
